FAERS Safety Report 5024557-5 (Version None)
Quarter: 2006Q2

REPORT INFORMATION
  Report Type: 
  Country: None (occurrence: None)
  Receive Date: 20060607
  Receipt Date: 20060524
  Transmission Date: 20061013
  Serious: Yes (Other)
  Sender: FDA-Public Use
  Company Number: 2006068339

PATIENT
  Age: 12 Month

DRUGS (1)
  1. UNASYN [Suspect]
     Indication: ILL-DEFINED DISORDER
     Dosage: INTRAVENOUS
     Route: 042

REACTIONS (1)
  - UPPER GASTROINTESTINAL HAEMORRHAGE [None]
